FAERS Safety Report 24579226 (Version 3)
Quarter: 2024Q4

REPORT INFORMATION
  Report Type: Report from Study
  Country: CA (occurrence: CA)
  Receive Date: 20241105
  Receipt Date: 20241206
  Transmission Date: 20250115
  Serious: Yes (Hospitalization, Other)
  Sender: TAKEDA
  Company Number: CA-TAKEDA-2024TUS098373

PATIENT
  Sex: Male

DRUGS (1)
  1. VEDOLIZUMAB [Suspect]
     Active Substance: VEDOLIZUMAB
     Indication: Colitis ulcerative
     Dosage: 300 MILLIGRAM

REACTIONS (6)
  - Diverticulitis [Recovered/Resolved]
  - Acne cystic [Unknown]
  - Drug ineffective [Unknown]
  - Fistula [Recovering/Resolving]
  - Mouth ulceration [Unknown]
  - Haemorrhoids [Unknown]
